FAERS Safety Report 5688627-0 (Version None)
Quarter: 2008Q1

REPORT INFORMATION
  Report Type: 
  Country: None (occurrence: None)
  Receive Date: 20080331
  Receipt Date: 20080227
  Transmission Date: 20080703
  Serious: No
  Sender: FDA-Public Use
  Company Number: US-BAYER-200815843NA

PATIENT
  Age: 22 Year
  Sex: Female
  Weight: 73 kg

DRUGS (2)
  1. YAZ [Suspect]
     Indication: CONTRACEPTION
     Route: 048
  2. NIPPLE CREAM NOS [Concomitant]

REACTIONS (3)
  - ACNE [None]
  - INCREASED APPETITE [None]
  - WEIGHT INCREASED [None]
